FAERS Safety Report 18991342 (Version 1)
Quarter: 2021Q1

REPORT INFORMATION
  Report Type: Spontaneous
  Country: DE (occurrence: DE)
  Receive Date: 20210310
  Receipt Date: 20210310
  Transmission Date: 20210420
  Serious: Yes (Hospitalization)
  Sender: FDA-Public Use
  Company Number: NVSC2021DE045129

PATIENT
  Age: 4 Year
  Sex: Female
  Weight: 12 kg

DRUGS (3)
  1. CYCLOSPORINE. [Suspect]
     Active Substance: CYCLOSPORINE
     Indication: LIVER TRANSPLANT
     Dosage: 50 MG,QD ,(EVERY DAYS 2 SEPARATED DOSES )
     Route: 048
     Dates: start: 201604
  2. MAGNESIUM SULFATE. [Concomitant]
     Active Substance: MAGNESIUM SULFATE
     Indication: PRODUCT USED FOR UNKNOWN INDICATION
     Dosage: 5 UNK,(5MMOL),QD
     Route: 048
     Dates: start: 201608
  3. URSOFALK [Concomitant]
     Active Substance: URSODIOL
     Indication: CONGENITAL ABSENCE OF BILE DUCTS
     Dosage: 100 MG,QD (2 SEPARATED DOSES)
     Route: 048
     Dates: start: 201510

REACTIONS (4)
  - Pyrexia [Recovered/Resolved]
  - Cough [Recovered/Resolved]
  - Nasopharyngitis [Recovered/Resolved]
  - Upper respiratory tract infection [Recovered/Resolved]

NARRATIVE: CASE EVENT DATE: 201910
